FAERS Safety Report 9193744 (Version 2)
Quarter: 2013Q1

REPORT INFORMATION
  Report Type: Report from Study
  Country: DE (occurrence: DE)
  Receive Date: 20130327
  Receipt Date: 20130329
  Transmission Date: 20140127
  Serious: Yes (Hospitalization)
  Sender: FDA-Public Use
  Company Number: DE-JNJFOC-20130311951

PATIENT
  Age: 67 Year
  Sex: Male

DRUGS (6)
  1. SIMPONI [Suspect]
     Indication: RHEUMATOID ARTHRITIS
     Route: 058
     Dates: start: 20110116, end: 20121001
  2. MTX [Concomitant]
     Indication: RHEUMATOID ARTHRITIS
     Dates: start: 20100203
  3. FOLIC ACID [Concomitant]
     Indication: PROPHYLAXIS
     Dates: start: 20101025
  4. FOLIC ACID [Concomitant]
     Indication: RHEUMATOID ARTHRITIS
     Dates: start: 20101025
  5. ARCOXIA [Concomitant]
     Indication: RHEUMATOID ARTHRITIS
     Dates: start: 20101025
  6. VOTUMPLUS [Concomitant]
     Indication: HYPERTENSION
     Dates: start: 20110213

REACTIONS (1)
  - Prostate cancer [Unknown]
